FAERS Safety Report 8003777-1 (Version None)
Quarter: 2011Q4

REPORT INFORMATION
  Report Type: 
  Country: None (occurrence: None)
  Receive Date: 20111222
  Receipt Date: 20111214
  Transmission Date: 20120403
  Serious: Yes (Hospitalization)
  Sender: FDA-Public Use
  Company Number: KR-B.I. PHARMACEUTICALS,INC./RIDGEFIELD-2011-BP-28531YA

PATIENT
  Age: 58 Year
  Sex: Female
  Weight: 70 kg

DRUGS (6)
  1. AMLODIPINE [Concomitant]
  2. POLYCARBOPHIL (POLYCARBOPHIL) [Concomitant]
     Dates: start: 20110530
  3. CARVEDILOL [Concomitant]
  4. TAMSULOSIN HCL [Suspect]
     Indication: NEUROGENIC BLADDER
     Dosage: 0.2 MG
     Route: 048
     Dates: start: 20110713, end: 20110813
  5. GLIMEPIRIDE [Concomitant]
  6. LACTIC ACID (LACTIC ACID) [Concomitant]
     Dates: start: 20110530

REACTIONS (1)
  - COLON CANCER [None]
